FAERS Safety Report 9658015 (Version 3)
Quarter: 2013Q4

REPORT INFORMATION
  Report Type: Spontaneous
  Country: SG (occurrence: None)
  Receive Date: 20131029
  Receipt Date: 20131129
  Transmission Date: 20140711
  Serious: Yes (Hospitalization)
  Sender: FDA-Public Use
  Company Number: SYM-2013-12129

PATIENT
  Age: 68 Year
  Sex: Male

DRUGS (13)
  1. 5-FU [Suspect]
     Indication: COLORECTAL CANCER
     Route: 040
     Dates: start: 20130729, end: 20130729
  2. IRINOTECAN [Suspect]
     Indication: COLORECTAL CANCER
     Route: 041
     Dates: start: 20130729, end: 20130729
  3. LEUCOVORIN [Suspect]
     Route: 041
     Dates: start: 20130917, end: 20130917
  4. AFLIBERCEPT [Suspect]
     Route: 041
     Dates: start: 20131010, end: 20131010
  5. BENADRYL (DIPHENHYDRAMINE HYDROCHLORIDE) [Concomitant]
  6. LOPERAMIDE [Concomitant]
  7. ENALAPRIL [Concomitant]
  8. DEXAMETHASONE [Concomitant]
  9. PANADOL (PARACETAMOL) [Concomitant]
  10. ONDANSETRON [Concomitant]
  11. ATROPINE (ATROPINE SULFATE) [Concomitant]
  12. POTASSIUM CHLORIDE [Concomitant]
     Indication: COLORECTAL CANCER
  13. RANITIDINE [Concomitant]
     Indication: COLORECTAL CANCER

REACTIONS (7)
  - Chills [None]
  - Diarrhoea [None]
  - Vomiting [None]
  - Abdominal pain [None]
  - Neutropenic sepsis [None]
  - Cholecystitis acute [None]
  - Gallbladder perforation [None]
